FAERS Safety Report 14454806 (Version 3)
Quarter: 2018Q3

REPORT INFORMATION
  Report Type: Spontaneous
  Country: US (occurrence: US)
  Receive Date: 20180129
  Receipt Date: 20180912
  Transmission Date: 20181010
  Serious: Yes (Hospitalization, Other)
  Sender: FDA-Public Use
  Company Number: US-DSJP-DSU-2017-138105

PATIENT

DRUGS (1)
  1. BENICAR [Suspect]
     Active Substance: OLMESARTAN MEDOXOMIL
     Indication: PRODUCT USED FOR UNKNOWN INDICATION
     Dosage: 20 MG, QD
     Route: 048
     Dates: start: 20120131, end: 20150330

REACTIONS (7)
  - Colitis ischaemic [Unknown]
  - Intestinal obstruction [Recovered/Resolved]
  - Cholecystitis [Unknown]
  - Sprue-like enteropathy [Recovered/Resolved]
  - Ulcer [Unknown]
  - Gastrooesophageal reflux disease [Recovered/Resolved]
  - Peritonitis [Recovered/Resolved]

NARRATIVE: CASE EVENT DATE: 20091207
